FAERS Safety Report 4619048-7 (Version None)
Quarter: 2005Q2

REPORT INFORMATION
  Report Type: 
  Country: None (occurrence: None)
  Receive Date: 20050321
  Receipt Date: 20041107
  Transmission Date: 20051028
  Serious: Yes (Hospitalization, Other)
  Sender: FDA-Public Use
  Company Number: 2004-11-0456

PATIENT
  Age: 53 Year
  Sex: Female

DRUGS (7)
  1. PEG-INTRON [Suspect]
     Indication: HEPATITIS C
     Dosage: 80 MCG QWK SUBCUTANEOUS;  40 MCG QWK SUBCUTANEOUS
     Route: 058
     Dates: start: 20040901, end: 20041006
  2. PEG-INTRON [Suspect]
     Indication: HEPATITIS C
     Dosage: 80 MCG QWK SUBCUTANEOUS;  40 MCG QWK SUBCUTANEOUS
     Route: 058
     Dates: start: 20041007, end: 20041108
  3. RIBAVIRIN [Suspect]
     Indication: HEPATITIS C
     Dosage: 1000 MG QD ORAL;  UNKNOWN ORAL
     Route: 048
     Dates: start: 20040901, end: 20041006
  4. RIBAVIRIN [Suspect]
     Indication: HEPATITIS C
     Dosage: 1000 MG QD ORAL;  UNKNOWN ORAL
     Route: 048
     Dates: start: 20041007, end: 20041108
  5. TEGRETOL [Concomitant]
  6. BUSPAR [Concomitant]
  7. TRAZODONE HCL [Concomitant]

REACTIONS (12)
  - AMNESIA [None]
  - ANAEMIA [None]
  - CONFUSIONAL STATE [None]
  - DEPRESSION [None]
  - FATIGUE [None]
  - HALLUCINATION [None]
  - INSOMNIA [None]
  - MANIA [None]
  - PAIN [None]
  - PANIC ATTACK [None]
  - PYREXIA [None]
  - SUICIDAL IDEATION [None]
